FAERS Safety Report 6993988-6 (Version None)
Quarter: 2010Q3

REPORT INFORMATION
  Report Type: 
  Country: None (occurrence: None)
  Receive Date: 20100917
  Receipt Date: 20100426
  Transmission Date: 20110219
  Serious: No
  Sender: FDA-Public Use
  Company Number: US-ASTRAZENECA-2010SE18635

PATIENT
  Age: 57 Year
  Sex: Male
  Weight: 74.8 kg

DRUGS (5)
  1. SEROQUEL [Suspect]
     Indication: BIPOLAR DISORDER
     Route: 048
     Dates: start: 20060101, end: 20100401
  2. SEROQUEL [Suspect]
     Route: 048
     Dates: start: 20100401
  3. LITHIUM CARBONATE [Concomitant]
     Indication: BIPOLAR DISORDER
     Route: 048
  4. KLONOPIN [Concomitant]
  5. PROPRANOLOL [Concomitant]

REACTIONS (3)
  - AGITATION [None]
  - DEPRESSION [None]
  - DRUG DOSE OMISSION [None]
